FAERS Safety Report 5866502-6 (Version None)
Quarter: 2008Q3

REPORT INFORMATION
  Report Type: 
  Country: None (occurrence: None)
  Receive Date: 20080902
  Receipt Date: 20080902
  Transmission Date: 20090109
  Serious: Yes (Hospitalization)
  Sender: FDA-Public Use
  Company Number: PHEH1995US01288

PATIENT
  Sex: Male
  Weight: 93 kg

DRUGS (6)
  1. SANDIMMUN SIM+ [Suspect]
     Route: 048
     Dates: start: 19950718, end: 19951025
  2. MAGNESIUM OXIDE (MAGNESIUM OXIDE) [Concomitant]
  3. ACYCLOVIR [Concomitant]
  4. BACTRIM [Concomitant]
  5. ZANTAC [Concomitant]
  6. DIFLUCAN [Concomitant]

REACTIONS (3)
  - BLOOD BILIRUBIN INCREASED [None]
  - THERAPEUTIC RESPONSE DECREASED [None]
  - TRANSPLANT REJECTION [None]
